FAERS Safety Report 9747073 (Version 1)
Quarter: 2013Q4

REPORT INFORMATION
  Report Type: Spontaneous
  Country: GB (occurrence: GB)
  Receive Date: 20131211
  Receipt Date: 20131211
  Transmission Date: 20140711
  Serious: Yes (Disabling, Other)
  Sender: FDA-Public Use
  Company Number: PHHY2013GB142781

PATIENT
  Age: 79 Year
  Sex: Female
  Weight: 82.55 kg

DRUGS (4)
  1. WARFARIN [Suspect]
     Indication: CEREBROVASCULAR ACCIDENT
     Dosage: 1 DF, QD
     Route: 048
     Dates: start: 20120630
  2. SIMVASTATIN [Suspect]
     Indication: CEREBROVASCULAR ACCIDENT
     Dosage: 1 DF, QD
     Route: 048
     Dates: start: 20120630
  3. BETA BLOCKING AGENTS [Suspect]
     Indication: CEREBROVASCULAR ACCIDENT
     Dosage: 2 OR 3 DOSAGE FORMS DAILY
     Route: 048
     Dates: start: 20120630
  4. PARACETAMOL [Concomitant]

REACTIONS (2)
  - Gait disturbance [Not Recovered/Not Resolved]
  - Dizziness [Not Recovered/Not Resolved]
